FAERS Safety Report 5476865-1 (Version None)
Quarter: 2007Q4

REPORT INFORMATION
  Report Type: 
  Country: None (occurrence: None)
  Receive Date: 20071002
  Receipt Date: 20071002
  Transmission Date: 20080405
  Serious: Yes (Life-Threatening)
  Sender: FDA-Public Use
  Company Number: None

PATIENT
  Sex: Female
  Weight: 122.0176 kg

DRUGS (1)
  1. PROAIR HFA [Suspect]

REACTIONS (6)
  - ASTHMA [None]
  - DEVICE MALFUNCTION [None]
  - DRUG EFFECT DECREASED [None]
  - DRUG LEVEL DECREASED [None]
  - PHARMACEUTICAL PRODUCT COMPLAINT [None]
  - STRESS [None]
